FAERS Safety Report 23766792 (Version 2)
Quarter: 2024Q2

REPORT INFORMATION
  Report Type: Spontaneous
  Country: US (occurrence: US)
  Receive Date: 20240422
  Receipt Date: 20240502
  Transmission Date: 20240716
  Serious: No
  Sender: FDA-Public Use
  Company Number: US-BIOGEN-2024BI01252780

PATIENT
  Sex: Female

DRUGS (2)
  1. SKYCLARYS [Suspect]
     Active Substance: OMAVELOXOLONE
     Indication: Friedreich^s ataxia
     Route: 050
     Dates: start: 20240119
  2. SKYCLARYS [Suspect]
     Active Substance: OMAVELOXOLONE
     Route: 050

REACTIONS (5)
  - Menopausal symptoms [Unknown]
  - Night sweats [Unknown]
  - Diarrhoea [Unknown]
  - Abdominal pain upper [Unknown]
  - Migraine [Unknown]
